FAERS Safety Report 16639256 (Version 1)
Quarter: 2019Q3

REPORT INFORMATION
  Report Type: Spontaneous
  Country: FR (occurrence: FR)
  Receive Date: 20190726
  Receipt Date: 20190726
  Transmission Date: 20191004
  Serious: Yes (Other)
  Sender: FDA-Public Use
  Company Number: FR-009507513-1907FRA013502

PATIENT
  Age: 59 Year
  Sex: Female

DRUGS (1)
  1. KEYTRUDA [Suspect]
     Active Substance: PEMBROLIZUMAB
     Indication: METASTATIC MALIGNANT MELANOMA
     Dosage: 120 MILLIGRAM, CYCLICAL; POWDER FOR SOLUTION TO DILUTE FOR  INFUSION
     Route: 041
     Dates: start: 20171006

REACTIONS (10)
  - Asthenia [Recovered/Resolved]
  - Hyperthyroidism [Recovered/Resolved]
  - Nausea [Recovered/Resolved]
  - Fatigue [Recovered/Resolved]
  - Hypothyroidism [Recovered/Resolved with Sequelae]
  - Weight decreased [Recovered/Resolved]
  - Constipation [Recovered/Resolved]
  - Tremor [Recovered/Resolved]
  - Hypokinesia [Recovered/Resolved]
  - Sleep disorder [Recovered/Resolved]

NARRATIVE: CASE EVENT DATE: 20171027
